FAERS Safety Report 5227621-0 (Version None)
Quarter: 2007Q1

REPORT INFORMATION
  Report Type: 
  Country: None (occurrence: None)
  Receive Date: 20070202
  Receipt Date: 20070117
  Transmission Date: 20070707
  Serious: Yes (Other)
  Sender: FDA-Public Use
  Company Number: US-BRISTOL-MYERS SQUIBB COMPANY-13653753

PATIENT
  Sex: Male

DRUGS (1)
  1. SINEMET CR [Suspect]
     Indication: PARKINSON'S DISEASE
     Route: 048
     Dates: start: 20050601, end: 20050610

REACTIONS (5)
  - BALANCE DISORDER [None]
  - FALL [None]
  - FEELING COLD [None]
  - PARKINSONISM [None]
  - PHARMACEUTICAL PRODUCT COMPLAINT [None]
